FAERS Safety Report 9324142 (Version 2)
Quarter: 2013Q3

REPORT INFORMATION
  Report Type: Report from Study
  Country: JP (occurrence: JP)
  Receive Date: 20130603
  Receipt Date: 20130712
  Transmission Date: 20140515
  Serious: Yes (Hospitalization)
  Sender: FDA-Public Use
  Company Number: JP-SANOFI-AVENTIS-2013SA054175

PATIENT
  Age: 85 Year
  Sex: Male
  Weight: 49.5 kg

DRUGS (29)
  1. PLAVIX [Suspect]
     Indication: ACUTE MYOCARDIAL INFARCTION
     Route: 048
     Dates: start: 20120315, end: 20120315
  2. PLAVIX [Suspect]
     Indication: ACUTE MYOCARDIAL INFARCTION
     Route: 048
     Dates: start: 20120316
  3. ASPIRIN [Concomitant]
     Indication: ACUTE MYOCARDIAL INFARCTION
     Route: 048
     Dates: start: 20120315
  4. HEPARIN [Concomitant]
     Indication: ACUTE MYOCARDIAL INFARCTION
     Dosage: DOSE:6000 UNIT(S)
     Route: 065
     Dates: start: 20120327, end: 20120327
  5. HEPARIN [Concomitant]
     Indication: ACUTE MYOCARDIAL INFARCTION
     Dosage: DOSE:2000 UNIT(S)
     Route: 042
     Dates: start: 20120315, end: 20120315
  6. HEPARIN [Concomitant]
     Indication: ACUTE MYOCARDIAL INFARCTION
     Dosage: DOSE:5000 UNIT(S)
     Route: 042
     Dates: start: 20120315, end: 20120315
  7. HEPARIN [Concomitant]
     Indication: ACUTE MYOCARDIAL INFARCTION
     Dosage: CONTINUOUS IV INFUSION DOSE:10000 UNIT(S)
     Route: 065
     Dates: start: 20120315, end: 20120318
  8. GAMOFA [Concomitant]
     Indication: PROPHYLAXIS
     Route: 065
     Dates: start: 20120315, end: 20120315
  9. NITOROL [Concomitant]
     Indication: ACUTE MYOCARDIAL INFARCTION
     Route: 065
     Dates: start: 20120327, end: 20120327
  10. NITOROL [Concomitant]
     Indication: ACUTE MYOCARDIAL INFARCTION
     Dosage: FREQUENCY:  6 TIMES A DAY
     Route: 065
     Dates: start: 20120315, end: 20120315
  11. PENMALIN [Concomitant]
     Indication: PRODUCT USED FOR UNKNOWN INDICATION
     Route: 065
     Dates: start: 20120315, end: 20120327
  12. NICORANDIL [Concomitant]
     Indication: ACUTE MYOCARDIAL INFARCTION
     Dosage: FREQUENCY: CONTINUOUS INTRAVENOUS INFUSION
     Route: 041
     Dates: start: 20120315, end: 20120318
  13. MAGNESIUM SULFATE [Concomitant]
     Indication: ACUTE MYOCARDIAL INFARCTION
     Dosage: FREQUENCY: CONTINUOUS INTRAVENOUS INFUSION
     Route: 042
     Dates: start: 20120315, end: 20120315
  14. FAMOTIDINE [Concomitant]
     Indication: PRODUCT USED FOR UNKNOWN INDICATION
     Route: 048
  15. DAIKENTYUTO [Concomitant]
     Indication: PRODUCT USED FOR UNKNOWN INDICATION
     Route: 048
  16. BIO THREE [Concomitant]
     Indication: PRODUCT USED FOR UNKNOWN INDICATION
     Route: 048
  17. MUCOSAL [Concomitant]
     Indication: PRODUCT USED FOR UNKNOWN INDICATION
     Route: 048
  18. CRESTOR [Concomitant]
     Indication: PRODUCT USED FOR UNKNOWN INDICATION
     Route: 048
     Dates: start: 20120315, end: 20120412
  19. LIVALO [Concomitant]
     Indication: PRODUCT USED FOR UNKNOWN INDICATION
     Route: 048
     Dates: start: 20120511
  20. RISPERDAL [Concomitant]
     Indication: PRODUCT USED FOR UNKNOWN INDICATION
     Dosage: FREQUENCY: QRN
     Route: 048
     Dates: start: 20120315
  21. ARTIST [Concomitant]
     Indication: ACUTE MYOCARDIAL INFARCTION
     Route: 048
     Dates: start: 20120317, end: 20120326
  22. MAINTATE [Concomitant]
     Indication: ACUTE MYOCARDIAL INFARCTION
     Route: 048
     Dates: start: 20120403
  23. MAINTATE [Concomitant]
     Indication: ACUTE MYOCARDIAL INFARCTION
     Route: 048
     Dates: start: 20120327, end: 20120402
  24. NIKORANMART [Concomitant]
     Indication: ACUTE MYOCARDIAL INFARCTION
     Route: 048
     Dates: start: 20120317
  25. NU-LOTAN [Concomitant]
     Indication: PRODUCT USED FOR UNKNOWN INDICATION
     Route: 048
     Dates: start: 20120327, end: 20120510
  26. NU-LOTAN [Concomitant]
     Indication: PRODUCT USED FOR UNKNOWN INDICATION
     Route: 048
     Dates: start: 20120320, end: 20120326
  27. OLMETEC [Concomitant]
     Indication: PRODUCT USED FOR UNKNOWN INDICATION
     Route: 048
     Dates: start: 20120511
  28. MYSLEE [Concomitant]
     Indication: PRODUCT USED FOR UNKNOWN INDICATION
     Route: 048
     Dates: start: 20120328
  29. LASIX [Concomitant]
     Indication: ACUTE MYOCARDIAL INFARCTION
     Route: 048
     Dates: start: 20120321

REACTIONS (2)
  - Intestinal obstruction [Unknown]
  - Angina pectoris [Recovered/Resolved]
